FAERS Safety Report 10622695 (Version 1)
Quarter: 2014Q4

REPORT INFORMATION
  Report Type: Spontaneous
  Country: US (occurrence: None)
  Receive Date: 20141202
  Receipt Date: 20141202
  Transmission Date: 20150529
  Serious: Yes (Hospitalization)
  Sender: FDA-Public Use
  Company Number: None

PATIENT
  Age: 76 Year
  Sex: Female
  Weight: 77.11 kg

DRUGS (1)
  1. PROLIA [Suspect]
     Active Substance: DENOSUMAB
     Indication: OSTEOPOROSIS
     Dosage: TWICE A YEAR 2X PER YEAR GIVEN INTO/UNDER THE SKIN
     Dates: start: 20140820, end: 20140820

REACTIONS (2)
  - Groin pain [None]
  - Dysstasia [None]

NARRATIVE: CASE EVENT DATE: 20141124
